FAERS Safety Report 20256741 (Version 1)
Quarter: 2021Q4

REPORT INFORMATION
  Report Type: Spontaneous
  Country: US (occurrence: None)
  Receive Date: 20211229
  Receipt Date: 20211229
  Transmission Date: 20220303
  Serious: Yes (Life-Threatening, Disabling)
  Sender: FDA-Public Use
  Company Number: None

PATIENT
  Age: 68 Year
  Sex: Male
  Weight: 75.6 kg

DRUGS (10)
  1. DULOXETINE HCL DR [Suspect]
     Active Substance: DULOXETINE HYDROCHLORIDE
     Indication: Pain
     Dosage: FREQUENCY : DAILY;?
     Route: 048
     Dates: start: 20211228, end: 20211228
  2. DULOXETINE HCL DR [Suspect]
     Active Substance: DULOXETINE HYDROCHLORIDE
     Indication: Depression
  3. VISION SHARP MULTI-NUTRIENT EYE HEALTH [Concomitant]
  4. YOUNGEVITY ULTIMATE GLUCGEL [Concomitant]
  5. COENZYME Q10 [Concomitant]
     Active Substance: DIETARY SUPPLEMENT\UBIDECARENONE
  6. COEMZYME METHYL B COMPLEX [Concomitant]
  7. OMEGA-3 ACIDS [Concomitant]
     Active Substance: OMEGA-3 FATTY ACIDS
  8. CHROME [Concomitant]
  9. VANADIUM [Suspect]
     Active Substance: VANADIUM
  10. LO DOSE ASPIRIN 81 MG [Concomitant]

REACTIONS (5)
  - Palpitations [None]
  - Blood pressure increased [None]
  - Erythema [None]
  - Insomnia [None]
  - Diarrhoea [None]

NARRATIVE: CASE EVENT DATE: 20211228
